FAERS Safety Report 5590114-5 (Version None)
Quarter: 2008Q1

REPORT INFORMATION
  Report Type: 
  Country: None (occurrence: None)
  Receive Date: 20080114
  Receipt Date: 20070327
  Transmission Date: 20080703
  Serious: No
  Sender: FDA-Public Use
  Company Number: US-ABBOTT-07P-163-0363721-00

PATIENT
  Sex: Male
  Weight: 14.528 kg

DRUGS (1)
  1. OMNICEF [Suspect]
     Indication: DRUG USE FOR UNKNOWN INDICATION
     Route: 048
     Dates: start: 20070315, end: 20070318

REACTIONS (3)
  - AGGRESSION [None]
  - ANGER [None]
  - PERSONALITY CHANGE [None]
